FAERS Safety Report 5852875-7 (Version None)
Quarter: 2008Q3

REPORT INFORMATION
  Report Type: 
  Country: None (occurrence: None)
  Receive Date: 20080821
  Receipt Date: 20080813
  Transmission Date: 20090109
  Serious: No
  Sender: FDA-Public Use
  Company Number: US-ELI_LILLY_AND_COMPANY-US200808002699

PATIENT
  Age: 56 Year
  Sex: Male

DRUGS (4)
  1. CIALIS [Suspect]
     Dosage: 20 MG, UNK
     Dates: start: 20080401
  2. SINEMET [Concomitant]
  3. STALEVO 100 [Concomitant]
  4. ATROPINE [Concomitant]
     Route: 060

REACTIONS (1)
  - VISUAL BRIGHTNESS [None]
